FAERS Safety Report 20317423 (Version 2)
Quarter: 2022Q1

REPORT INFORMATION
  Report Type: Spontaneous
  Country: AR (occurrence: AR)
  Receive Date: 20220110
  Receipt Date: 20220301
  Transmission Date: 20220423
  Serious: No
  Sender: FDA-Public Use
  Company Number: AR-PFIZER INC-202101842597

PATIENT
  Age: 52 Year
  Sex: Female

DRUGS (1)
  1. GENOTROPIN [Suspect]
     Active Substance: SOMATROPIN
     Indication: Growth hormone deficiency
     Dosage: 0.1 TO 0.5 MG, 7X PER WEEK
     Dates: start: 20190321

REACTIONS (4)
  - Device breakage [Not Recovered/Not Resolved]
  - Device use issue [Unknown]
  - Product administration interrupted [Unknown]
  - Malaise [Not Recovered/Not Resolved]
